FAERS Safety Report 5860813-6 (Version None)
Quarter: 2008Q3

REPORT INFORMATION
  Report Type: 
  Country: None (occurrence: None)
  Receive Date: 20080827
  Receipt Date: 20071130
  Transmission Date: 20090109
  Serious: No
  Sender: FDA-Public Use
  Company Number: US-ABBOTT-07P-163-0426888-00

PATIENT
  Sex: Female
  Weight: 67.646 kg

DRUGS (2)
  1. COATED PDS [Suspect]
     Indication: BLOOD CHOLESTEROL INCREASED
     Route: 048
     Dates: start: 20070801, end: 20071101
  2. COATED PDS [Suspect]
     Route: 048
     Dates: start: 20030101, end: 20070801

REACTIONS (2)
  - FLUSHING [None]
  - PRURITUS GENERALISED [None]
